FAERS Safety Report 6552490-6 (Version None)
Quarter: 2010Q1

REPORT INFORMATION
  Report Type: 
  Country: None (occurrence: None)
  Receive Date: 20100126
  Receipt Date: 20100115
  Transmission Date: 20100710
  Serious: Yes (Hospitalization)
  Sender: FDA-Public Use
  Company Number: US-SANOFI-AVENTIS-2010SA000949

PATIENT
  Age: 52 Year
  Sex: Male
  Weight: 87 kg

DRUGS (9)
  1. PLAVIX [Suspect]
     Indication: PERCUTANEOUS CORONARY INTERVENTION
     Route: 048
     Dates: start: 20080611, end: 20080611
  2. PLAVIX [Suspect]
     Route: 048
     Dates: start: 20080611, end: 20080611
  3. PLACEBO INFUSION [Suspect]
     Indication: PERCUTANEOUS CORONARY INTERVENTION
     Route: 051
     Dates: start: 20080611, end: 20080611
  4. PLACEBO INFUSION [Suspect]
     Route: 051
     Dates: start: 20080611, end: 20080611
  5. ANGIOMAX [Concomitant]
  6. ASPIRIN [Concomitant]
  7. HEPARIN [Concomitant]
  8. VERSED [Concomitant]
     Dates: start: 20080611, end: 20080611
  9. FENTANYL [Concomitant]

REACTIONS (1)
  - HYPERTENSIVE EMERGENCY [None]
